FAERS Safety Report 6307861-X (Version None)
Quarter: 2009Q3

REPORT INFORMATION
  Report Type: 
  Country: None (occurrence: None)
  Receive Date: 20090812
  Receipt Date: 20090812
  Transmission Date: 20100115
  Serious: Yes (Other)
  Sender: FDA-Public Use
  Company Number: None

PATIENT
  Sex: Female
  Weight: 92.0802 kg

DRUGS (2)
  1. CLOZARIL [Suspect]
     Indication: DEPRESSION
     Dosage: 100 MG BID PO
     Route: 048
     Dates: start: 20090701, end: 20090801
  2. CLOZARIL [Suspect]
     Indication: SCHIZOAFFECTIVE DISORDER
     Dosage: 100 MG BID PO
     Route: 048
     Dates: start: 20090701, end: 20090801

REACTIONS (3)
  - DISTURBANCE IN ATTENTION [None]
  - THINKING ABNORMAL [None]
  - TONGUE DISORDER [None]
